FAERS Safety Report 8961546 (Version 3)
Quarter: 2014Q3

REPORT INFORMATION
  Report Type: Spontaneous
  Country: US (occurrence: US)
  Receive Date: 20121213
  Receipt Date: 20140804
  Transmission Date: 20150326
  Serious: Yes (Hospitalization, Other)
  Sender: FDA-Public Use
  Company Number: US-BAYER-2012-129952

PATIENT
  Age: 36 Year
  Sex: Female
  Weight: 99.77 kg

DRUGS (10)
  1. TYELNOL [Concomitant]
     Indication: PAIN IN EXTREMITY
     Dosage: 600 MG, UNK
     Route: 048
  2. FLUTICASONE [Concomitant]
     Active Substance: FLUTICASONE\FLUTICASONE PROPIONATE
     Dosage: 50 ?G, UNK
     Route: 045
     Dates: start: 20100906
  3. YAZ [Suspect]
     Active Substance: DROSPIRENONE\ETHINYL ESTRADIOL
     Indication: CONTRACEPTION
     Dosage: UNK
     Route: 048
     Dates: start: 2009, end: 2010
  4. ZITHROMAX [Concomitant]
     Active Substance: AZITHROMYCIN DIHYDRATE
     Indication: BRONCHITIS
  5. ADVIL [Concomitant]
     Active Substance: IBUPROFEN
     Indication: PAIN IN EXTREMITY
     Dosage: 400 MG, UNK
     Route: 048
  6. OTHER ANALGESICS AND ANTIPYRETICS [Concomitant]
     Indication: PAIN IN EXTREMITY
     Dosage: 2 TABLES
     Route: 048
  7. PREDNISONE. [Concomitant]
     Active Substance: PREDNISONE
     Indication: BRONCHITIS
  8. LISINOPRIL. [Concomitant]
     Active Substance: LISINOPRIL
  9. HYDROCODONE/ACETAMINOPHEN [Concomitant]
     Active Substance: ACETAMINOPHEN\HYDROCODONE
     Dosage: 10 -325 MG
     Route: 048
     Dates: start: 20100906
  10. PROAIR HFA [Concomitant]
     Active Substance: ALBUTEROL SULFATE
     Dosage: 90 ?G, UNK
     Dates: start: 20100906

REACTIONS (8)
  - Thrombosis [None]
  - Dyspnoea [None]
  - Deep vein thrombosis [None]
  - Chest pain [None]
  - Peripheral swelling [None]
  - Mobility decreased [None]
  - Pulmonary embolism [None]
  - Pain in extremity [None]

NARRATIVE: CASE EVENT DATE: 201009
